FAERS Safety Report 4426353-6 (Version None)
Quarter: 2004Q3

REPORT INFORMATION
  Report Type: 
  Country: None (occurrence: None)
  Receive Date: 20040810
  Receipt Date: 20040802
  Transmission Date: 20050211
  Serious: Yes (Other)
  Sender: FDA-Public Use
  Company Number: RB-829-2004

PATIENT
  Age: 36 Year
  Sex: Female

DRUGS (3)
  1. BUPRENORPHINE HYDROCHLORIDE [Suspect]
     Indication: DRUG DEPENDENCE
     Dosage: 0.4 MG QD/2 MG QD/6 MG QD
     Route: 060
     Dates: start: 19990101, end: 20020101
  2. BUPRENORPHINE HYDROCHLORIDE [Suspect]
     Indication: DRUG DEPENDENCE
     Dosage: 0.4 MG QD/2 MG QD/6 MG QD
     Route: 060
  3. BUPRENORPHINE HYDROCHLORIDE [Suspect]
     Indication: DRUG DEPENDENCE
     Dosage: 0.4 MG QD/2 MG QD/6 MG QD
     Route: 060
     Dates: start: 20020101

REACTIONS (2)
  - LIP DISORDER [None]
  - SQUAMOUS CELL CARCINOMA [None]
